FAERS Safety Report 18758641 (Version 1)
Quarter: 2021Q1

REPORT INFORMATION
  Report Type: Report from Study
  Country: CA (occurrence: CA)
  Receive Date: 20210119
  Receipt Date: 20210119
  Transmission Date: 20210419
  Serious: Yes (Other)
  Sender: FDA-Public Use
  Company Number: CA-ASTRAZENECA-2020SF63551

PATIENT
  Sex: Female

DRUGS (5)
  1. METHYLPREDNISOLONE. [Concomitant]
     Active Substance: METHYLPREDNISOLONE
  2. VENTOLIN [Concomitant]
     Active Substance: ALBUTEROL SULFATE
  3. FASENRA [Suspect]
     Active Substance: BENRALIZUMAB
     Indication: ASTHMA
     Dosage: 30.0MG UNKNOWN
     Route: 058
     Dates: start: 20200227
  4. PULMICORT TURBUHALER2 PUFFS [Concomitant]
  5. INSPIOLTO RESPIMAT 2 PUFFS [Concomitant]

REACTIONS (1)
  - Herpes zoster [Recovering/Resolving]
